FAERS Safety Report 5137066-X (Version None)
Quarter: 2006Q4

REPORT INFORMATION
  Report Type: 
  Country: None (occurrence: None)
  Receive Date: 20061030
  Receipt Date: 20060417
  Transmission Date: 20070319
  Serious: Yes (Death, Life-Threatening, Hospitalization, Other)
  Sender: FDA-Public Use
  Company Number: US-BAYER-200612407BWH

PATIENT
  Age: 74 Year
  Sex: Female
  Weight: 52 kg

DRUGS (41)
  1. TRASYLOL [Suspect]
     Indication: AORTIC VALVE REPLACEMENT
     Dosage: UNIT DOSE: 570000 KIU
     Route: 042
     Dates: start: 20040804, end: 20040804
  2. TRASYLOL [Suspect]
     Dosage: UNIT DOSE: 10000 KIU
     Route: 042
     Dates: start: 20040804, end: 20040804
  3. PREOPERATIVE ANESTHESIA [Suspect]
  4. PROTAMINE SULFATE [Suspect]
  5. NIMBEX [Suspect]
  6. PRE-OP ANTIBIOTIC [Suspect]
  7. SYNTHROID [Concomitant]
  8. LESCOL [Concomitant]
  9. DARVOCET [Concomitant]
  10. IRON SULFATETHIAMIN COMPOUND TAB [Concomitant]
  11. CALCIUM GLUCONATE [Concomitant]
  12. DIGOXIN [Concomitant]
  13. WARFARIN SODIUM [Concomitant]
  14. FOSAMAX [Concomitant]
  15. ASCORBIC ACID [Concomitant]
  16. HEPARIN [Concomitant]
  17. NEO-SYNEPHRINE [Concomitant]
  18. ALBUMIN (HUMAN) [Concomitant]
  19. NORMOSOL [Concomitant]
  20. MANNITOL [Concomitant]
  21. LASIX [Concomitant]
  22. PROTAMINE SULFATE [Concomitant]
  23. SONATA [Concomitant]
  24. ZITHROMAX [Concomitant]
  25. AMIODARONE HCL [Concomitant]
  26. VITAMINS [Concomitant]
  27. POTASSIUM CHLORIDE [Concomitant]
  28. VERSED [Concomitant]
  29. CEFAZOLIN [Concomitant]
  30. LACTATED RINGER'S [Concomitant]
  31. SODIUM CHLORIDE [Concomitant]
  32. DOPAMINE HCL IN 5% DEXTROSE [Concomitant]
  33. EPINEPHRINE [Concomitant]
  34. ZANTAC [Concomitant]
  35. SOLU-CORTEF [Concomitant]
  36. SODIUM CHLORIDE [Concomitant]
  37. KANAMYCIN SULFATE [Concomitant]
  38. BENADRYL [Concomitant]
  39. INSULIN [Concomitant]
  40. SOLU-CORTEF [Concomitant]
  41. MAGNESIUM SULFATE [Concomitant]

REACTIONS (10)
  - ANAPHYLACTIC REACTION [None]
  - ANAPHYLACTIC SHOCK [None]
  - CARDIAC ARREST [None]
  - HYPOTENSION [None]
  - METABOLIC ACIDOSIS [None]
  - MULTI-ORGAN FAILURE [None]
  - OEDEMA [None]
  - RESPIRATORY FAILURE [None]
  - VENTRICULAR FIBRILLATION [None]
  - VENTRICULAR HYPOKINESIA [None]
